FAERS Safety Report 8365628-5 (Version None)
Quarter: 2012Q2

REPORT INFORMATION
  Report Type: 
  Country: None (occurrence: None)
  Receive Date: 20120516
  Receipt Date: 20120509
  Transmission Date: 20120825
  Serious: Yes (Hospitalization, Other)
  Sender: FDA-Public Use
  Company Number: US-MERCK-1111USA02502

PATIENT
  Age: 48 Year
  Sex: Female

DRUGS (2)
  1. FOSAMAX [Suspect]
     Route: 048
     Dates: start: 19990301
  2. FOSAMAX [Suspect]
     Indication: OSTEOPENIA
     Route: 048
     Dates: start: 19990301

REACTIONS (32)
  - ORAL SURGERY [None]
  - OPEN WOUND [None]
  - ARTHROPOD BITE [None]
  - CELLULITIS [None]
  - GINGIVAL BLEEDING [None]
  - PAIN IN EXTREMITY [None]
  - OVARIAN CYST [None]
  - ROAD TRAFFIC ACCIDENT [None]
  - EXOSTOSIS [None]
  - TOOTH DISORDER [None]
  - ARTHRALGIA [None]
  - FRACTURE [None]
  - TENDONITIS [None]
  - TEMPOROMANDIBULAR JOINT SYNDROME [None]
  - OSTEOPOROSIS [None]
  - SPONDYLOLISTHESIS [None]
  - GENERALISED ANXIETY DISORDER [None]
  - TOOTH FRACTURE [None]
  - GASTRITIS [None]
  - CARPAL TUNNEL SYNDROME [None]
  - ANKLE FRACTURE [None]
  - ANKLE DEFORMITY [None]
  - GASTROOESOPHAGEAL REFLUX DISEASE [None]
  - PNEUMONIA [None]
  - PALPITATIONS [None]
  - SLEEP APNOEA SYNDROME [None]
  - FEMUR FRACTURE [None]
  - OSTEONECROSIS OF JAW [None]
  - FOOT FRACTURE [None]
  - OSTEOARTHRITIS [None]
  - INFECTION [None]
  - HIATUS HERNIA [None]
